FAERS Safety Report 23517534 (Version 1)
Quarter: 2024Q1

REPORT INFORMATION
  Report Type: 
  Country: None (occurrence: None)
  Receive Date: 20240213
  Receipt Date: 20240213
  Transmission Date: 20240410
  Serious: No
  Sender: FDA-Public Use
  Company Number: US-ROCHE-3462373

PATIENT

DRUGS (9)
  1. ATEZOLIZUMAB [Suspect]
     Active Substance: ATEZOLIZUMAB
     Dosage: MOST RECENT DOSE OF STUDY DRUG ADMINISTERED PRIOR AE  ON 23/OCT/2023
     Dates: start: 20231023
  2. ZANZALINTINIB [Suspect]
     Active Substance: ZANZALINTINIB
     Dosage: MOST RECENT DOSE OF STUDY DRUG ADMINISTERED PRIOR TO AE ON 01/NOV/2023.
     Dates: start: 20231023
  3. ZANZALINTINIB [Suspect]
     Active Substance: ZANZALINTINIB
     Dosage: RECENT DOSE: 22/JAN/2024
     Dates: start: 20231101, end: 20231102
  4. LOPERAMIDE [Concomitant]
     Active Substance: LOPERAMIDE
     Dates: start: 20230804
  5. MORPHINE [Concomitant]
     Active Substance: MORPHINE
     Dates: start: 20230828
  6. ONDANSETRON [Concomitant]
     Active Substance: ONDANSETRON
     Dates: start: 20230509, end: 20231023
  7. OXYCODONE [Concomitant]
     Active Substance: OXYCODONE\OXYCODONE HYDROCHLORIDE
     Dates: start: 20230908
  8. POTASSIUM CHLORIDE [Concomitant]
     Active Substance: POTASSIUM CHLORIDE
     Dates: start: 20230404
  9. TAMSULOSIN [Concomitant]
     Active Substance: TAMSULOSIN

REACTIONS (2)
  - Hyponatraemia [None]
  - Presyncope [None]

NARRATIVE: CASE EVENT DATE: 20231106
